FAERS Safety Report 5991407-X (Version None)
Quarter: 2008Q4

REPORT INFORMATION
  Report Type: 
  Country: None (occurrence: None)
  Receive Date: 20081211
  Receipt Date: 20081203
  Transmission Date: 20090506
  Serious: Yes (Hospitalization)
  Sender: FDA-Public Use
  Company Number: PHHO2008IT14394

PATIENT
  Sex: Male
  Weight: 84 kg

DRUGS (6)
  1. CERTICAN [Suspect]
     Indication: HEART TRANSPLANT
     Dosage: UNK
     Route: 048
     Dates: start: 20061126
  2. CERTICAN [Suspect]
     Dosage: 1.75 MG, BID
     Route: 048
     Dates: start: 20070421
  3. CERTICAN [Suspect]
     Dosage: 0.25 MG, BID
     Route: 048
  4. NEORAL [Suspect]
     Indication: HEART TRANSPLANT
     Dosage: UNK
     Route: 048
     Dates: start: 20061126
  5. NEORAL [Suspect]
     Dosage: 1.25 MG, BID
     Route: 048
     Dates: start: 20070421
  6. NEORAL [Suspect]
     Dosage: 7.5 MG, BID
     Route: 048

REACTIONS (7)
  - BLOOD CREATININE INCREASED [None]
  - DEHYDRATION [None]
  - DIARRHOEA [None]
  - DYSPEPSIA [None]
  - MALAISE [None]
  - NAUSEA [None]
  - RENAL FAILURE ACUTE [None]
